FAERS Safety Report 5775429-X (Version None)
Quarter: 2008Q2

REPORT INFORMATION
  Report Type: 
  Country: None (occurrence: None)
  Receive Date: 20080617
  Receipt Date: 20080612
  Transmission Date: 20081010
  Serious: Yes (Death)
  Sender: FDA-Public Use
  Company Number: US-JNJFOC-20080603203

PATIENT
  Age: 58 Year
  Sex: Male

DRUGS (6)
  1. TRAMADOL HCL [Suspect]
     Indication: DRUG USE FOR UNKNOWN INDICATION
     Route: 065
  2. ATENOLOL [Concomitant]
  3. DIPHENHYDRAMINE HCL [Concomitant]
  4. BUPROPION HCL [Concomitant]
  5. HYDROCODONE [Concomitant]
  6. DIHYDROCODEINE BITARTRATE INJ [Concomitant]

REACTIONS (1)
  - ACCIDENT [None]
